FAERS Safety Report 22014069 (Version 1)
Quarter: 2023Q1

REPORT INFORMATION
  Report Type: Spontaneous
  Country: US (occurrence: None)
  Receive Date: 20230221
  Receipt Date: 20230221
  Transmission Date: 20230418
  Serious: No
  Sender: FDA-Public Use
  Company Number: 2023A028174

PATIENT
  Sex: Male
  Weight: 83 kg

DRUGS (1)
  1. BUDESONIDE\FORMOTEROL [Suspect]
     Active Substance: BUDESONIDE\FORMOTEROL
     Indication: Asthma
     Dosage: 160/4.5 MCG, 2 INHALATIONS TWO TIMES A DAY
     Route: 055

REACTIONS (3)
  - Memory impairment [Unknown]
  - Device use issue [Unknown]
  - Device defective [Unknown]
